FAERS Safety Report 21371125 (Version 2)
Quarter: 2022Q3

REPORT INFORMATION
  Report Type: Spontaneous
  Country: BR (occurrence: BR)
  Receive Date: 20220923
  Receipt Date: 20220928
  Transmission Date: 20221026
  Serious: Yes (Other)
  Sender: FDA-Public Use
  Company Number: BR-PFIZER INC-202201098181

PATIENT
  Sex: Male

DRUGS (1)
  1. LORAZEPAM [Suspect]
     Active Substance: LORAZEPAM
     Dosage: UNK
     Dates: start: 201708

REACTIONS (15)
  - Drug dependence [Unknown]
  - Depression [Unknown]
  - Mental disorder [Unknown]
  - Product use issue [Unknown]
  - Malaise [Unknown]
  - Feeling of despair [Unknown]
  - Nervousness [Unknown]
  - Dyspnoea [Unknown]
  - Pain [Unknown]
  - Tremor [Unknown]
  - Feeling abnormal [Unknown]
  - Tension [Unknown]
  - Anxiety [Unknown]
  - Agitation [Unknown]
  - Memory impairment [Unknown]
